FAERS Safety Report 25605410 (Version 1)
Quarter: 2025Q3

REPORT INFORMATION
  Report Type: Spontaneous
  Country: US (occurrence: None)
  Receive Date: 20250724
  Receipt Date: 20250724
  Transmission Date: 20251021
  Serious: Yes (Death, Hospitalization)
  Sender: FDA-CTU
  Company Number: None

PATIENT
  Age: 70 Year
  Sex: Male

DRUGS (1)
  1. PIRFENIDONE [Suspect]
     Active Substance: PIRFENIDONE
     Indication: Idiopathic pulmonary fibrosis
     Dosage: FREQUENCY : 3 TIMES A DAY;?
     Route: 048
     Dates: start: 20200319, end: 20250607

REACTIONS (7)
  - Asthenia [None]
  - Fall [None]
  - Dysstasia [None]
  - Gait inability [None]
  - Sepsis [None]
  - Fournier^s gangrene [None]
  - Perirectal abscess [None]

NARRATIVE: CASE EVENT DATE: 20250610
